FAERS Safety Report 7792597-9 (Version None)
Quarter: 2011Q4

REPORT INFORMATION
  Report Type: 
  Country: None (occurrence: None)
  Receive Date: 20111003
  Receipt Date: 20110927
  Transmission Date: 20120403
  Serious: Yes (Disabling, Other)
  Sender: FDA-Public Use
  Company Number: GB-PFIZER INC-2011230662

PATIENT
  Age: 38 Year
  Sex: Female
  Weight: 63 kg

DRUGS (4)
  1. DEPO-PROVERA [Suspect]
     Indication: CONTRACEPTION
     Dosage: 1 DF, EVERY 3 MONTHS
     Route: 030
     Dates: start: 20050101
  2. NAPROXEN [Concomitant]
     Dosage: 250 MG, 3X/DAY
     Route: 048
  3. VENLAFAXINE [Concomitant]
     Dosage: 112.5 MG, DAILY
     Route: 048
  4. PROPRANOLOL [Concomitant]
     Indication: STRESS
     Dosage: 10 MG, AS NEEDED

REACTIONS (1)
  - PORTAL VEIN THROMBOSIS [None]
